FAERS Safety Report 9201594 (Version 1)
Quarter: 2013Q1

REPORT INFORMATION
  Report Type: Spontaneous
  Country: US (occurrence: None)
  Receive Date: 20130327
  Receipt Date: 20130327
  Transmission Date: 20140127
  Serious: Yes (Other)
  Sender: FDA-Public Use
  Company Number: MERCK1211USA009790

PATIENT
  Sex: 0

DRUGS (2)
  1. BCG LIVE [Suspect]
  2. RECONSTRUCTION ACCESSORIES [Concomitant]

REACTIONS (2)
  - Device malfunction [None]
  - No adverse event [None]
